FAERS Safety Report 9687096 (Version 3)
Quarter: 2014Q1

REPORT INFORMATION
  Report Type: Spontaneous
  Country: US (occurrence: US)
  Receive Date: 20131113
  Receipt Date: 20140317
  Transmission Date: 20141002
  Serious: Yes (Other)
  Sender: FDA-Public Use
  Company Number: US-GILEAD-2013-0087475

PATIENT
  Age: 28 Year
  Sex: Female

DRUGS (6)
  1. LETAIRIS [Suspect]
     Indication: PULMONARY ARTERIAL HYPERTENSION
     Dosage: 5 MG, QD
     Route: 048
     Dates: start: 20130225, end: 20131106
  2. WARFARIN [Concomitant]
  3. SILDENAFIL [Concomitant]
  4. FUROSEMIDE [Concomitant]
  5. PARAGARD [Concomitant]
     Dosage: UNK
     Dates: start: 201303
  6. CYTOTEC [Concomitant]

REACTIONS (4)
  - Abortion spontaneous [Recovered/Resolved]
  - Vaginal haemorrhage [Unknown]
  - Vaginal haemorrhage [Unknown]
  - Muscle spasms [Unknown]
